FAERS Safety Report 10277120 (Version 10)
Quarter: 2015Q3

REPORT INFORMATION
  Report Type: Report from Study
  Country: US (occurrence: US)
  Receive Date: 20140703
  Receipt Date: 20150911
  Transmission Date: 20151125
  Serious: Yes (Life-Threatening, Hospitalization, Other)
  Sender: FDA-Public Use
  Company Number: US-ALEXION PHARMACEUTICALS INC.-A201402498

PATIENT

DRUGS (5)
  1. NEULASTA [Suspect]
     Active Substance: PEGFILGRASTIM
     Indication: INVASIVE LOBULAR BREAST CARCINOMA
     Dosage: UNK
     Route: 065
  2. PAXIL [Concomitant]
     Active Substance: PAROXETINE HYDROCHLORIDE
     Indication: PRODUCT USED FOR UNKNOWN INDICATION
     Route: 065
  3. CHEMOTHERAPEUTICS [Suspect]
     Active Substance: UNSPECIFIED INGREDIENT
     Indication: INVASIVE LOBULAR BREAST CARCINOMA
     Dosage: UNK
     Route: 065
  4. ARIMIDEX [Suspect]
     Active Substance: ANASTROZOLE
     Indication: BREAST CANCER
     Route: 065
  5. SOLIRIS [Suspect]
     Active Substance: ECULIZUMAB
     Indication: PAROXYSMAL NOCTURNAL HAEMOGLOBINURIA
     Dosage: 900 MG, Q2W
     Route: 042
     Dates: start: 20080910

REACTIONS (21)
  - Arthritis [Not Recovered/Not Resolved]
  - Oesophageal spasm [Unknown]
  - Arthralgia [Recovered/Resolved]
  - White blood cell disorder [Recovering/Resolving]
  - Alopecia [Recovering/Resolving]
  - Stomatitis [Unknown]
  - Invasive lobular breast carcinoma [Not Recovered/Not Resolved]
  - Sinusitis [Recovered/Resolved]
  - Full blood count decreased [Not Recovered/Not Resolved]
  - Wound infection staphylococcal [Recovered/Resolved]
  - Lymphocyte count decreased [Unknown]
  - Platelet count decreased [Recovering/Resolving]
  - Post procedural infection [Recovering/Resolving]
  - Bone pain [Recovered/Resolved]
  - Laboratory test abnormal [Unknown]
  - Metastases to lymph nodes [Unknown]
  - Staphylococcal infection [Recovered/Resolved]
  - Wound dehiscence [Unknown]
  - Dyspepsia [Unknown]
  - Anaemia [Unknown]
  - Neutrophil count decreased [Unknown]

NARRATIVE: CASE EVENT DATE: 20140618
